FAERS Safety Report 4291751-0 (Version None)
Quarter: 2004Q1

REPORT INFORMATION
  Report Type: 
  Country: None (occurrence: None)
  Receive Date: 20040211
  Receipt Date: 20030212
  Transmission Date: 20041129
  Serious: No
  Sender: FDA-Public Use
  Company Number: US-GLAXOSMITHKLINE-A0396470A

PATIENT
  Age: 53 Year
  Sex: Female
  Weight: 85 kg

DRUGS (1)
  1. IMITREX [Suspect]
     Route: 065

REACTIONS (1)
  - ALOPECIA [None]
